FAERS Safety Report 10542153 (Version 1)
Quarter: 2014Q4

REPORT INFORMATION
  Report Type: Spontaneous
  Country: US (occurrence: None)
  Receive Date: 20141010
  Receipt Date: 20141010
  Transmission Date: 20150529
  Serious: No
  Sender: FDA-Public Use
  Company Number: 163-POMAL-14064077

PATIENT
  Age: 76 Year
  Sex: Female
  Weight: 95.26 kg

DRUGS (10)
  1. POMALYST [Suspect]
     Active Substance: POMALIDOMIDE
     Indication: PLASMA CELL MYELOMA
     Route: 048
     Dates: start: 201304
  2. BENADRYL (CLONALIN) [Concomitant]
  3. LEVOTHYROXINE [Concomitant]
     Active Substance: LEVOTHYROXINE
  4. ALLOPURINOL. [Concomitant]
     Active Substance: ALLOPURINOL
  5. DIOVAN [Concomitant]
     Active Substance: VALSARTAN
  6. ZOFRAN (ONDANSETRON HYDROCHLORIDE) [Concomitant]
  7. DEXAMETHASONE. [Concomitant]
     Active Substance: DEXAMETHASONE
  8. ASPIRIN. [Concomitant]
     Active Substance: ASPIRIN
  9. PHENERGAN [Concomitant]
     Active Substance: PROMETHAZINE HYDROCHLORIDE
  10. XANAX [Concomitant]
     Active Substance: ALPRAZOLAM

REACTIONS (5)
  - Skin discolouration [None]
  - Dyspnoea [None]
  - Pruritus [None]
  - Vomiting [None]
  - Rash erythematous [None]

NARRATIVE: CASE EVENT DATE: 201404
